FAERS Safety Report 11128558 (Version 3)
Quarter: 2015Q3

REPORT INFORMATION
  Report Type: Report from Study
  Country: US (occurrence: US)
  Receive Date: 20150521
  Receipt Date: 20150808
  Transmission Date: 20151125
  Serious: Yes (Other)
  Sender: FDA-Public Use
  Company Number: US-SA-2014SA152156

PATIENT
  Age: 58 Year
  Sex: Female

DRUGS (1)
  1. AUBAGIO [Suspect]
     Active Substance: TERIFLUNOMIDE
     Indication: MULTIPLE SCLEROSIS
     Route: 048
     Dates: start: 20141018

REACTIONS (15)
  - Impaired driving ability [Unknown]
  - Asthenia [Unknown]
  - Gait disturbance [Unknown]
  - Iron binding capacity total decreased [Unknown]
  - Blood glucose decreased [Unknown]
  - Multiple sclerosis relapse [Unknown]
  - Peroneal nerve palsy [Unknown]
  - Blood pressure increased [Unknown]
  - Muscle spasms [Unknown]
  - Feeling abnormal [Unknown]
  - Syncope [Unknown]
  - Hyperhidrosis [Unknown]
  - Paraesthesia [Unknown]
  - Burning sensation [Unknown]
  - Hypoglycaemia [Unknown]

NARRATIVE: CASE EVENT DATE: 2014
